FAERS Safety Report 9412538 (Version 1)
Quarter: 2013Q2

REPORT INFORMATION
  Report Type: Spontaneous
  Country: FR (occurrence: None)
  Receive Date: 20130628
  Receipt Date: 20130628
  Transmission Date: 20140414
  Serious: Yes (Hospitalization)
  Sender: FDA-Public Use
  Company Number: 7050313

PATIENT
  Age: 78 Year
  Sex: Female

DRUGS (14)
  1. LEVOTHYROX [Suspect]
     Indication: PRODUCT USED FOR UNKNOWN INDICATION
     Dosage: 1 IN 1 DAY
     Dates: start: 20110201, end: 20110316
  2. LEVOTHYROXINE [Suspect]
     Indication: PRODUCT USED FOR UNKNOWN INDICATION
     Route: 048
     Dates: start: 20110218, end: 20110316
  3. LUDICMIL (MAPROTLINE HYDROCHLORIDE) (75 MG, TABLET) (MAPROTLINE) [Concomitant]
  4. ALLOPURINOL (ALLOPURINOL) (100 MG, TABLET) (ALLOPURINOL) [Concomitant]
  5. LASIX (FUROSEMIDE) (40 MG, TABLET) (FUROSEMIDE) [Concomitant]
  6. NEBIVOLOL MYLAN (NEBIVOLOL) (5 MG, TABLET) (BEBVILOL) [Concomitant]
  7. COTAREG (CO-DIOVAN)(TABLET) (VALSARTAN, HYDROCHLOROTHIAZIDE) [Concomitant]
  8. DISCOTRINE (GLYCERYL TRINITRATE) (10 MG, TRANSDERMAL PATCH) (TRINITRATE) [Concomitant]
  9. KALEORID LP (POTASSIUM CHLORIDE) (1000 MG, TABLET) (POTASSIUM CHLORIDE) [Concomitant]
  10. TRIVASTAL (PIRIBEDIL) (20 MG, TABLET) (PIRIBEDIL) [Concomitant]
  11. METFORMINE ALFPHARA  (METFORMIN HYDROCHLORIDE)(METFORMIN) [Concomitant]
  12. CLARADOL (PARACETAMOL) (500MG, TABLET) (PARACETAMOL, CAFEINE) [Concomitant]
  13. DIAMICRON (GLICLAZIDE) (80 MG, TABLET) (GLICALZIDE) [Concomitant]
  14. CLARADOL (PARACETAMOL) (500 MG, TABLET) (PARACETAMOL, CAFEINE) [Concomitant]

REACTIONS (4)
  - Weight decreased [None]
  - Asthenia [None]
  - Hyperthyroidism [None]
  - Accidental overdose [None]
